FAERS Safety Report 5803617-2 (Version None)
Quarter: 2008Q3

REPORT INFORMATION
  Report Type: 
  Country: None (occurrence: None)
  Receive Date: 20080708
  Receipt Date: 20080627
  Transmission Date: 20090109
  Serious: Yes (Hospitalization, Other)
  Sender: FDA-Public Use
  Company Number: AU-PFIZER INC-2008042665

PATIENT
  Sex: Male
  Weight: 80 kg

DRUGS (6)
  1. SUTENT [Suspect]
     Indication: RENAL CELL CARCINOMA
     Dosage: FREQ:DAILY: 4 WEEKS ON / 2 WEEKS OFF
     Route: 048
  2. NEXIUM [Concomitant]
     Dosage: DAILY DOSE:40MG-FREQ:DAILY
     Route: 048
  3. LIPITOR [Concomitant]
     Dosage: DAILY DOSE:80MG-FREQ:DAILY
     Route: 048
  4. ATENOLOL [Concomitant]
     Dosage: DAILY DOSE:25MG-FREQ:DAILY
     Route: 048
  5. COVERSYL PLUS [Concomitant]
     Dosage: TEXT:HALF A TABLET-FREQ:DAILY
     Route: 048
  6. ACETYLSALICYLIC ACID SRT [Concomitant]
     Dosage: DAILY DOSE:150MG
     Route: 048

REACTIONS (3)
  - CEREBRAL ISCHAEMIA [None]
  - DYSPHAGIA [None]
  - HEMIPLEGIA [None]
